FAERS Safety Report 4480980-9 (Version None)
Quarter: 2004Q4

REPORT INFORMATION
  Report Type: 
  Country: None (occurrence: None)
  Receive Date: 20041019
  Receipt Date: 20041007
  Transmission Date: 20050328
  Serious: Yes (Other)
  Sender: FDA-Public Use
  Company Number: 2004077282

PATIENT
  Age: 80 Year
  Sex: Male
  Weight: 72.5755 kg

DRUGS (8)
  1. MYADEC (MULTIVITAMINS, MINERALS) [Suspect]
     Indication: VITAMIN SUPPLEMENTATION
     Dosage: 1 TABLET, DAILY ,ORAL
     Route: 048
     Dates: start: 19640101, end: 19990101
  2. LEVOTHYROXINE SODIUM [Concomitant]
  3. DIGOXIN [Concomitant]
  4. LISINOPRIL [Concomitant]
  5. ACETYLSALICYLIC ACID [Concomitant]
  6. MONTELUKAST SODIUM [Concomitant]
  7. SIMVASTATIN [Concomitant]
  8. OXYBUTYNIN [Concomitant]

REACTIONS (1)
  - CORONARY ARTERY SURGERY [None]
